FAERS Safety Report 16667934 (Version 1)
Quarter: 2019Q3

REPORT INFORMATION
  Report Type: Spontaneous
  Country: US (occurrence: US)
  Receive Date: 20190805
  Receipt Date: 20190805
  Transmission Date: 20191004
  Serious: No
  Sender: FDA-Public Use
  Company Number: US-GLENMARK PHARMACEUTICALS-2019GMK042137

PATIENT

DRUGS (1)
  1. TACROZ OINTMENT 0.1% [Suspect]
     Active Substance: TACROLIMUS
     Indication: ACTINIC CHEILITIS
     Dosage: UNK
     Route: 050

REACTIONS (5)
  - Adverse event [Unknown]
  - Product administration error [Unknown]
  - Product use in unapproved indication [Unknown]
  - Therapy cessation [Unknown]
  - Product prescribing error [Unknown]
